FAERS Safety Report 9835252 (Version 2)
Quarter: 2014Q1

REPORT INFORMATION
  Report Type: Spontaneous
  Country: US (occurrence: US)
  Receive Date: 20140122
  Receipt Date: 20140122
  Transmission Date: 20141002
  Serious: No
  Sender: FDA-Public Use
  Company Number: US-BRISTOL-MYERS SQUIBB COMPANY-19893213

PATIENT
  Age: 62 Year
  Sex: Female
  Weight: 106.57 kg

DRUGS (11)
  1. ELIQUIS [Suspect]
     Indication: ATRIAL FIBRILLATION
     Route: 048
     Dates: start: 20131114, end: 20131203
  2. ACETYLSALICYLIC ACID [Concomitant]
  3. ALLOPURINOL [Concomitant]
  4. LIPITOR [Concomitant]
  5. COQ10 [Concomitant]
  6. CARDIZEM [Concomitant]
  7. VITAMIN D [Concomitant]
  8. LISINOPRIL [Concomitant]
  9. OMEPRAZOLE [Concomitant]
  10. SOTALOL [Concomitant]
  11. ALDACTONE [Concomitant]
     Dosage: TABS

REACTIONS (1)
  - Vaginal haemorrhage [Not Recovered/Not Resolved]
